FAERS Safety Report 8142708 (Version 4)
Quarter: 2014Q2

REPORT INFORMATION
  Report Type: Spontaneous
  Country: US (occurrence: US)
  Receive Date: 20110919
  Receipt Date: 20140527
  Transmission Date: 20141212
  Serious: Yes (Hospitalization, Other)
  Sender: FDA-Public Use
  Company Number: US-GLAXOSMITHKLINE-A0944884A

PATIENT
  Age: 70 Year
  Sex: Male

DRUGS (2)
  1. AVANDIA [Suspect]
     Indication: DIABETES MELLITUS
     Dosage: 8MG PER DAY
     Route: 048
     Dates: start: 2000, end: 2007
  2. AVANDAMET [Suspect]
     Indication: DIABETES MELLITUS
     Route: 048
     Dates: start: 200503, end: 200504

REACTIONS (7)
  - Myocardial ischaemia [Recovering/Resolving]
  - Bundle branch block left [Unknown]
  - Atrial fibrillation [Unknown]
  - Myocardial infarction [Unknown]
  - Coronary artery disease [Unknown]
  - Arteriosclerosis coronary artery [Unknown]
  - Atrioventricular block [Unknown]
